FAERS Safety Report 7107543 (Version 12)
Quarter: 2012Q4

REPORT INFORMATION
  Report Type: 
  Country: CA (occurrence: CA)
  Receive Date: 20090908
  Receipt Date: 20121111
  Transmission Date: 20130627
  Serious: Yes (Other)
  Sender: FDA-Public Use
  Company Number: PHHY2009CA34947

PATIENT
  Sex: Female

DRUGS (3)
  1. SANDOSTATIN LAR [Suspect]
     Indication: ACROMEGALY
     Dosage: 10 mg every 4 weeks
     Route: 030
     Dates: start: 20090721
  2. SANDOSTATIN LAR [Suspect]
     Dosage: 10 mg, once a month
     Route: 030
     Dates: end: 20101108
  3. LANREOTIDE [Suspect]
     Dosage: UNK UKN, UNK

REACTIONS (14)
  - Waist circumference increased [Unknown]
  - Movement disorder [Unknown]
  - Abdominal pain [Unknown]
  - Abdominal discomfort [Unknown]
  - Abdominal distension [Unknown]
  - Flatulence [Unknown]
  - Diarrhoea [Unknown]
  - Vomiting [Unknown]
  - Constipation [Unknown]
  - Cholecystitis [Unknown]
  - Loose tooth [Unknown]
  - Blood pressure increased [Unknown]
  - Decreased appetite [Unknown]
  - Headache [Unknown]
